FAERS Safety Report 12889445 (Version 1)
Quarter: 2016Q4

REPORT INFORMATION
  Report Type: Spontaneous
  Country: US (occurrence: US)
  Receive Date: 20161027
  Receipt Date: 20161027
  Transmission Date: 20170207
  Serious: Yes (Other)
  Sender: FDA-Public Use
  Company Number: US-GLAXOSMITHKLINE-US2016157409

PATIENT
  Age: 55 Year
  Sex: Male

DRUGS (1)
  1. AQUAFRESH EXTREME CLEAN DEEP ACTION [Suspect]
     Active Substance: SODIUM FLUORIDE
     Indication: DENTAL CLEANING
     Dosage: UNK
     Dates: start: 201610, end: 20161023

REACTIONS (8)
  - Oropharyngeal discomfort [Recovering/Resolving]
  - Oropharyngeal blistering [Recovering/Resolving]
  - Oral mucosal blistering [Unknown]
  - Throat irritation [Unknown]
  - Chemical burn of gastrointestinal tract [Recovering/Resolving]
  - Oral disorder [Recovering/Resolving]
  - Tongue disorder [Unknown]
  - Tongue blistering [Recovering/Resolving]
